FAERS Safety Report 16362680 (Version 2)
Quarter: 2019Q3

REPORT INFORMATION
  Report Type: Spontaneous
  Country: US (occurrence: US)
  Receive Date: 20190528
  Receipt Date: 20190726
  Transmission Date: 20191004
  Serious: Yes (Other)
  Sender: FDA-Public Use
  Company Number: US-BRISTOL-MYERS SQUIBB COMPANY-BMS-2019-049934

PATIENT
  Sex: Female
  Weight: 57.15 kg

DRUGS (4)
  1. OPDIVO [Suspect]
     Active Substance: NIVOLUMAB
     Indication: MALIGNANT MELANOMA
     Dosage: 240 MILLIGRAM, Q2WK
     Route: 042
  2. OPDIVO [Suspect]
     Active Substance: NIVOLUMAB
     Indication: PRODUCT USED FOR UNKNOWN INDICATION
     Dosage: 480 MILLIGRAM, Q4WK
     Route: 042
  3. CLONAZEPAM. [Concomitant]
     Active Substance: CLONAZEPAM
     Indication: PRODUCT USED FOR UNKNOWN INDICATION
     Dosage: UNK
     Route: 065
  4. LEVOTHYROXINE. [Concomitant]
     Active Substance: LEVOTHYROXINE
     Indication: PRODUCT USED FOR UNKNOWN INDICATION
     Dosage: UNK
     Route: 065

REACTIONS (13)
  - Chills [Unknown]
  - Pyrexia [Unknown]
  - Progesterone decreased [Unknown]
  - Night sweats [Unknown]
  - Rash [Unknown]
  - Nausea [Unknown]
  - Headache [Unknown]
  - Blood oestrogen abnormal [Unknown]
  - Syncope [Unknown]
  - Vomiting [Unknown]
  - Weight decreased [Unknown]
  - Dizziness [Unknown]
  - Blood follicle stimulating hormone increased [Unknown]
